FAERS Safety Report 8289696-4 (Version None)
Quarter: 2012Q2

REPORT INFORMATION
  Report Type: 
  Country: None (occurrence: None)
  Receive Date: 20120417
  Receipt Date: 20120411
  Transmission Date: 20120825
  Serious: Yes (Hospitalization, Other)
  Sender: FDA-Public Use
  Company Number: US-AMGEN-USASP2011048140

PATIENT
  Age: 45 Year
  Sex: Female
  Weight: 96.78 kg

DRUGS (4)
  1. ARAVA [Concomitant]
     Dosage: UNK
  2. ENBREL [Suspect]
     Dosage: 50 MG, QWK
     Dates: start: 20100709, end: 20110401
  3. ENBREL [Suspect]
     Indication: RHEUMATOID ARTHRITIS
     Dosage: 50 MG, QWK
     Route: 058
     Dates: start: 20100901, end: 20110301
  4. HYDROXYCHLOROQUINE SULFATE [Concomitant]
     Dosage: UNK

REACTIONS (3)
  - ASTHMA [None]
  - PNEUMONIA [None]
  - CHEST DISCOMFORT [None]
